FAERS Safety Report 4539283-6 (Version None)
Quarter: 2004Q4

REPORT INFORMATION
  Report Type: 
  Country: None (occurrence: None)
  Receive Date: 20041222
  Receipt Date: 20041209
  Transmission Date: 20050328
  Serious: Yes (Life-Threatening, Hospitalization)
  Sender: FDA-Public Use
  Company Number: DE-2004-028922

PATIENT
  Age: 26 Year
  Sex: Male
  Weight: 59 kg

DRUGS (20)
  1. CAMPATH [Suspect]
     Indication: LIVER TRANSPLANT
     Dosage: 20 MG, 2 DOSES, INTRAVENOUS
     Route: 042
     Dates: start: 20040615, end: 20040616
  2. TACROLIMUS (TACROLIMUS) [Concomitant]
  3. PROGRAF [Concomitant]
  4. URSO FALK [Concomitant]
  5. COTRIM D.S. [Concomitant]
  6. AMPHO-MORONAL (AMPHOTERICIN B) [Concomitant]
  7. LAXOBERAL (SODIUM PICOSULFATE) [Concomitant]
  8. LACTULOSE [Concomitant]
  9. ACC [Concomitant]
  10. PANTOZOL (PANTOPRAZOLE SODIUM) [Concomitant]
  11. TRAMADOL HCL [Concomitant]
  12. ASPIRIN [Concomitant]
  13. ZOVIRAX (ACICLOVIR SODIUM) [Concomitant]
  14. DIPIDOLOR (PIRITRAMIDE) [Concomitant]
  15. ENOXAPARIN SODIUM [Concomitant]
  16. NORMOC (BROMAZEPAM) [Concomitant]
  17. IMESON (NITRAZEPAM) [Concomitant]
  18. ACETAMINOPHEN [Concomitant]
  19. PROGRAF [Concomitant]
  20. DECORTIN [Concomitant]

REACTIONS (15)
  - BILE DUCT NECROSIS [None]
  - BILIARY TRACT DISORDER [None]
  - CYTOMEGALOVIRUS ANTIBODY POSITIVE [None]
  - HEPATIC CIRRHOSIS [None]
  - HEPATIC FAILURE [None]
  - HEPATIC INFECTION [None]
  - HEPATIC NECROSIS [None]
  - HERPES ZOSTER [None]
  - IMMUNOSUPPRESSION [None]
  - LIVER TRANSPLANT [None]
  - ORGAN FAILURE [None]
  - PROSTHESIS IMPLANTATION [None]
  - STREPTOCOCCAL INFECTION [None]
  - TRANSPLANT FAILURE [None]
  - VEIN DISORDER [None]
